FAERS Safety Report 12769146 (Version 1)
Quarter: 2016Q3

REPORT INFORMATION
  Report Type: Spontaneous
  Country: US (occurrence: US)
  Receive Date: 20160921
  Receipt Date: 20160921
  Transmission Date: 20161109
  Serious: No
  Sender: FDA-Public Use
  Company Number: US-ASTRAZENECA-2016SE77696

PATIENT
  Sex: Female

DRUGS (1)
  1. SYMBICORT [Suspect]
     Active Substance: BUDESONIDE\FORMOTEROL FUMARATE DIHYDRATE
     Dosage: ONE PUFF IN THE MORNING AND ONE PUFF IN THE EVENING
     Route: 055

REACTIONS (6)
  - Off label use [Not Recovered/Not Resolved]
  - Drug prescribing error [Unknown]
  - Intentional device misuse [Recovered/Resolved]
  - Dyspnoea [Unknown]
  - Drug dose omission [Unknown]
  - Product use issue [Unknown]
